FAERS Safety Report 15964336 (Version 4)
Quarter: 2019Q1

REPORT INFORMATION
  Report Type: Spontaneous
  Country: JP (occurrence: JP)
  Receive Date: 20190215
  Receipt Date: 20190314
  Transmission Date: 20190417
  Serious: Yes (Hospitalization)
  Sender: FDA-Public Use
  Company Number: JP-TAKEDA-2019TJP002994

PATIENT
  Age: 6 Decade
  Sex: Male

DRUGS (8)
  1. PREDNISOLONE. [Concomitant]
     Active Substance: PREDNISOLONE
     Indication: DERMATITIS ATOPIC
     Dosage: 1 MILLIGRAM, QD
     Route: 048
  2. ROXATIDINE ACETATE HYDROCHLORIDE [Concomitant]
     Active Substance: ROXATIDINE ACETATE HYDROCHLORIDE
     Indication: COLITIS ULCERATIVE
     Dosage: 37.5 MILLIGRAM, BID
     Route: 048
  3. MEPENZOLATE BROMIDE [Concomitant]
     Active Substance: MEPENZOLATE BROMIDE
     Indication: COLITIS ULCERATIVE
     Dosage: 15 MILLIGRAM, TID
     Route: 048
  4. ASACOL [Concomitant]
     Active Substance: MESALAMINE
     Indication: COLITIS ULCERATIVE
     Dosage: 1200 MILLIGRAM, TID
     Route: 048
  5. AZANIN [Concomitant]
     Active Substance: AZATHIOPRINE
     Indication: COLITIS ULCERATIVE
     Dosage: 50 MILLIGRAM, QD
     Route: 048
  6. ALLOPURINOL. [Concomitant]
     Active Substance: ALLOPURINOL
     Indication: THERAPEUTIC RESPONSE INCREASED
     Dosage: 50 MILLIGRAM, QD
     Route: 048
  7. DIMETICONE [Concomitant]
     Active Substance: DIMETHICONE
     Indication: COLITIS ULCERATIVE
     Dosage: 80 MILLIGRAM, TID
     Route: 048
  8. ENTYVIO [Suspect]
     Active Substance: VEDOLIZUMAB
     Indication: COLITIS ULCERATIVE
     Dosage: 300 MILLIGRAM
     Route: 041
     Dates: start: 20190112

REACTIONS (1)
  - Pneumonia [Recovering/Resolving]

NARRATIVE: CASE EVENT DATE: 20190126
